FAERS Safety Report 10042560 (Version 1)
Quarter: 2014Q1

REPORT INFORMATION
  Report Type: Spontaneous
  Country: US (occurrence: None)
  Receive Date: 20140325
  Receipt Date: 20140325
  Transmission Date: 20141002
  Serious: Yes (Life-Threatening, Other)
  Sender: FDA-Public Use
  Company Number: FK201400939

PATIENT
  Age: 60 Year
  Sex: Male

DRUGS (3)
  1. HALOPERIDOL INJECTION (HALOPERIDOL LACTATE) [Suspect]
     Indication: AGGRESSION
     Route: 030
  2. LORAZEPAM (LORAZEPAM) [Suspect]
     Indication: AGGRESSION
  3. KAVA (PIPER METHYSTICUM RHIZOME) [Suspect]
     Indication: PSYCHOSOCIAL SUPPORT
     Route: 048

REACTIONS (4)
  - Atrial flutter [None]
  - Drug interaction [None]
  - Depressed level of consciousness [None]
  - Cardiotoxicity [None]
